FAERS Safety Report 9361663 (Version 2)
Quarter: 2013Q4

REPORT INFORMATION
  Report Type: Spontaneous
  Country: US (occurrence: US)
  Receive Date: 20130621
  Receipt Date: 20131004
  Transmission Date: 20140711
  Serious: No
  Sender: FDA-Public Use
  Company Number: US-PFIZER INC-2013185039

PATIENT
  Age: 56 Year
  Sex: Female

DRUGS (14)
  1. SUTENT [Suspect]
     Indication: RENAL CANCER
     Dosage: 50 MG, CYCLIC (ONCE DAILY 28 DAYS ON 14 OFF)
     Route: 048
     Dates: start: 20130501
  2. XANAX [Concomitant]
     Dosage: UNK
  3. VITAMIN B12 [Concomitant]
     Dosage: UNK
  4. DILAUDID [Concomitant]
     Dosage: UNK
  5. LOPERAMIDE [Concomitant]
     Dosage: UNK
  6. LASIX [Concomitant]
     Dosage: UNK
  7. OXYCONTIN [Concomitant]
     Dosage: UNK
  8. RITALIN [Concomitant]
     Dosage: UNK
  9. REMERON [Concomitant]
     Dosage: UNK
  10. ZOFRAN [Concomitant]
     Dosage: UNK
  11. LINSEED OIL [Concomitant]
     Dosage: UNK
  12. IMMODIUM [Concomitant]
  13. KEPPRA [Concomitant]
     Dosage: UNK
  14. FLAXSEED OIL [Concomitant]
     Dosage: UNK

REACTIONS (2)
  - Stomatitis [Unknown]
  - Oral pain [Unknown]
